FAERS Safety Report 15831911 (Version 2)
Quarter: 2019Q1

REPORT INFORMATION
  Report Type: Report from Study
  Country: BR (occurrence: BR)
  Receive Date: 20190116
  Receipt Date: 20190301
  Transmission Date: 20190417
  Serious: Yes (Hospitalization)
  Sender: FDA-Public Use
  Company Number: BR-BIOGEN-2019BI00683601

PATIENT
  Age: 64 Year
  Sex: Female

DRUGS (1)
  1. AVONEX [Suspect]
     Active Substance: INTERFERON BETA-1A
     Indication: MULTIPLE SCLEROSIS
     Route: 030
     Dates: start: 201101

REACTIONS (4)
  - Headache [Not Recovered/Not Resolved]
  - Fall [Recovered/Resolved]
  - Cerebrovascular accident [Recovered/Resolved]
  - Head injury [Unknown]

NARRATIVE: CASE EVENT DATE: 201802
